FAERS Safety Report 4474210-1 (Version None)
Quarter: 2004Q4

REPORT INFORMATION
  Report Type: 
  Country: None (occurrence: None)
  Receive Date: 20041008
  Receipt Date: 20040924
  Transmission Date: 20050328
  Serious: Yes (Hospitalization)
  Sender: FDA-Public Use
  Company Number: T04-GER-06043-01

PATIENT
  Age: 90 Year
  Sex: Female

DRUGS (8)
  1. CIPRALEX (ESCITALOPRAM) [Suspect]
     Indication: ANXIETY DISORDER
     Dosage: 10 MG QD PO
     Route: 048
     Dates: start: 20040401, end: 20040520
  2. ENOXAPARIN SODIUM [Suspect]
     Indication: THROMBOSIS PROPHYLAXIS
     Dosage: 20 MG QD, SC
     Route: 058
     Dates: start: 20040401, end: 20040520
  3. ISCOVER (CLOPIDOGREL SULFATE) [Suspect]
     Indication: CEREBROVASCULAR ACCIDENT PROPHYLAXIS
     Dosage: 75 MG QD PO
     Route: 048
     Dates: start: 20040401, end: 20040520
  4. VIOXX [Suspect]
     Indication: LOCALISED OSTEOARTHRITIS
     Dosage: 12.5 MG QD PO
     Route: 048
     Dates: start: 20040401, end: 20040515
  5. AVELOX [Concomitant]
  6. DISALUNIL (HYDROCHLOROTHIAZIDE) [Concomitant]
  7. PANTOZOL (PANTOPRAZOLE SODIUM) [Concomitant]
  8. ZOCOR [Concomitant]

REACTIONS (4)
  - BLOOD SODIUM DECREASED [None]
  - DRUG INTERACTION [None]
  - GASTROINTESTINAL ULCER HAEMORRHAGE [None]
  - HAEMORRHAGIC DIATHESIS [None]
